FAERS Safety Report 7600407-5 (Version None)
Quarter: 2011Q3

REPORT INFORMATION
  Report Type: 
  Country: None (occurrence: None)
  Receive Date: 20110706
  Receipt Date: 20110706
  Transmission Date: 20111222
  Serious: Yes (Other)
  Sender: FDA-Public Use
  Company Number: None

PATIENT
  Sex: Female
  Weight: 72 kg

DRUGS (1)
  1. IRON DEXTRAN [Suspect]
     Indication: IRON DEFICIENCY ANAEMIA
     Dosage: 25 MG ONCE IV
     Route: 042
     Dates: start: 20110622

REACTIONS (3)
  - RESPIRATION ABNORMAL [None]
  - RENAL PAIN [None]
  - LOSS OF CONSCIOUSNESS [None]
